FAERS Safety Report 7637273 (Version 2)
Quarter: 2015Q4

REPORT INFORMATION
  Report Type: Spontaneous
  Country: US (occurrence: US)
  Receive Date: 20101022
  Receipt Date: 20151005
  Transmission Date: 20160305
  Serious: No
  Sender: FDA-Public Use
  Company Number: US-BAYER-201036406NA

PATIENT
  Age: 55 Year
  Sex: Female
  Weight: 86.36 kg

DRUGS (16)
  1. BETASERON [Suspect]
     Active Substance: INTERFERON BETA-1B
     Indication: MULTIPLE SCLEROSIS
     Route: 058
  2. AMPYRA [Suspect]
     Active Substance: DALFAMPRIDINE
     Indication: MULTIPLE SCLEROSIS
     Dosage: 10 MG, BID
     Route: 048
     Dates: start: 20100520
  3. COENZYME Q10 [Concomitant]
     Active Substance: UBIDECARENONE
  4. DEPAKOTE ER [Concomitant]
     Active Substance: DIVALPROEX SODIUM
  5. LISINOPRIL. [Concomitant]
     Active Substance: LISINOPRIL
  6. BACLOFEN. [Concomitant]
     Active Substance: BACLOFEN
  7. NITROFURANTOIN (MACROCRYSTALS) [Concomitant]
     Active Substance: NITROFURANTOIN
  8. METAMUCIL [Concomitant]
     Active Substance: PLANTAGO SEED
  9. LEVOTHYROXIN [Concomitant]
     Active Substance: LEVOTHYROXINE
     Dosage: 25 MCG
  10. ARIMIDEX [Concomitant]
     Active Substance: ANASTROZOLE
  11. MIRALAX [Concomitant]
     Active Substance: POLYETHYLENE GLYCOL 3350
     Dosage: 3350 NF CO Q-10
  12. DEXILANT [Concomitant]
     Active Substance: DEXLANSOPRAZOLE
  13. RITALIN [Concomitant]
     Active Substance: METHYLPHENIDATE HYDROCHLORIDE
  14. ENABLEX [Concomitant]
     Active Substance: DARIFENACIN\DARIFENACIN HYDROBROMIDE
  15. CRANBERRY. [Concomitant]
     Active Substance: CRANBERRY
     Dosage: URIN COM
  16. FISH OIL [Concomitant]
     Active Substance: FISH OIL

REACTIONS (2)
  - Dyspnoea [None]
  - Musculoskeletal stiffness [Unknown]

NARRATIVE: CASE EVENT DATE: 20100717
